FAERS Safety Report 10006665 (Version 1)
Quarter: 2014Q1

REPORT INFORMATION
  Report Type: Spontaneous
  Country: US (occurrence: None)
  Receive Date: 20140228
  Receipt Date: 20140228
  Transmission Date: 20141002
  Serious: No
  Sender: FDA-Public Use
  Company Number: 225144

PATIENT
  Sex: Male

DRUGS (1)
  1. PICATO (INGENOL MEBUTATE) (0.015 %, GEL) [Suspect]
     Indication: PRECANCEROUS SKIN LESION
     Dosage: 1 IN 1 D), TOPICAL
     Route: 061
     Dates: start: 20131124

REACTIONS (2)
  - Application site vesicles [None]
  - Laceration [None]
